FAERS Safety Report 8757265 (Version 2)
Quarter: 2013Q4

REPORT INFORMATION
  Report Type: Spontaneous
  Country: US (occurrence: US)
  Receive Date: 20120828
  Receipt Date: 20131101
  Transmission Date: 20140711
  Serious: No
  Sender: FDA-Public Use
  Company Number: US-009507513-1207USA010428

PATIENT
  Sex: Female
  Weight: 61.22 kg

DRUGS (2)
  1. ZEGERID OTC CAPSULES [Suspect]
     Indication: ULCER
     Dosage: UNK, BID
  2. ZEGERID OTC CAPSULES [Suspect]
     Indication: MEDICAL OBSERVATION

REACTIONS (1)
  - Prescribed overdose [Unknown]
